FAERS Safety Report 9413552 (Version 1)
Quarter: 2013Q2

REPORT INFORMATION
  Report Type: Spontaneous
  Country: US (occurrence: None)
  Receive Date: 20130402
  Receipt Date: 20130402
  Transmission Date: 20140414
  Serious: No
  Sender: FDA-Public Use
  Company Number: 2013-0525

PATIENT
  Age: 79 Year
  Sex: Male

DRUGS (2)
  1. KYPROLIS (CARFILZOMIB) (INJECTION FOR INFUSION) (CARFILZOMIB) [Suspect]
     Indication: PLASMA CELL MYELOMA
     Dosage: (2 IN 1 WK) INTRAVENOUS
     Route: 042
     Dates: start: 20121029
  2. ZOMETA (ZOLEDRONIC ACID) [Concomitant]

REACTIONS (1)
  - Obliterative bronchiolitis [None]
